FAERS Safety Report 21690330 (Version 1)
Quarter: 2022Q4

REPORT INFORMATION
  Report Type: Spontaneous
  Country: US (occurrence: US)
  Receive Date: 20221206
  Receipt Date: 20221206
  Transmission Date: 20230112
  Serious: No
  Sender: FDA-Public Use
  Company Number: US-BRAINTREE LABORATORIES, INC.-2022BTE00701

PATIENT
  Age: 65 Year
  Sex: Male

DRUGS (7)
  1. SUTAB [Suspect]
     Active Substance: MAGNESIUM SULFATE\POTASSIUM CHLORIDE\SODIUM SULFATE
     Indication: Colonoscopy
     Dosage: 2 X 12 TABLETS, 1X
     Route: 048
     Dates: start: 20220810, end: 20220811
  2. MILK OF MAGNESIA [Suspect]
     Active Substance: MAGNESIUM HYDROXIDE
     Indication: Colonoscopy
     Dosage: 30 ML, 1X/DAY
     Route: 048
     Dates: start: 20220809, end: 20220810
  3. CASTOR OIL [Suspect]
     Active Substance: CASTOR OIL
     Indication: Colonoscopy
     Dosage: 60 ML, ONCE
     Route: 048
     Dates: start: 20220809, end: 20220809
  4. LEVOTHYROXINE [Concomitant]
     Active Substance: LEVOTHYROXINE
     Dosage: 50 ?G, 1X/DAY
     Route: 048
     Dates: start: 2016
  5. METFORMIN [Concomitant]
     Active Substance: METFORMIN HYDROCHLORIDE
     Dosage: 1000 MG, 2X/DAY
     Route: 048
     Dates: start: 2017
  6. MELATONIN [Concomitant]
     Active Substance: MELATONIN
     Dosage: 3 MG, 1X/DAY NIGHTLY
     Route: 048
     Dates: start: 2022
  7. CENTRUM MULTIVITAMIN FOR SENIORS [Concomitant]
     Dosage: 1 TABLETS, ON OCCASION
     Route: 048
     Dates: start: 2017, end: 202206

REACTIONS (4)
  - Gastrointestinal sounds abnormal [Recovered/Resolved]
  - Abdominal discomfort [Recovered/Resolved]
  - Drug ineffective [Recovered/Resolved]
  - Wrong technique in product usage process [Recovered/Resolved]

NARRATIVE: CASE EVENT DATE: 20220810
